FAERS Safety Report 9929378 (Version 1)
Quarter: 2014Q1

REPORT INFORMATION
  Report Type: Spontaneous
  Country: FR (occurrence: FR)
  Receive Date: 20140227
  Receipt Date: 20140227
  Transmission Date: 20141002
  Serious: Yes (Hospitalization)
  Sender: FDA-Public Use
  Company Number: FR-TEVA-463326ISR

PATIENT
  Age: 67 Year
  Sex: Female
  Weight: 68 kg

DRUGS (9)
  1. ROPINIROLE TEVA [Suspect]
     Dosage: .75 MILLIGRAM DAILY; LONG-TERM TREATMENT
     Route: 048
  2. CHLORHYDRATE DE TRAMADOL W/PARACET AMOL [Suspect]
     Indication: PAIN
     Dosage: 3 DOSAGE FORMS DAILY; TRAMADOL / PARACETAMOL 37.5/ 325 MG
     Route: 048
     Dates: end: 20140202
  3. CHLORHYDRATE D^AMILORIDE + HYDROCHLOROTHIAZIDE [Suspect]
     Dosage: LONG-TERM TREATMENT (AMILORIDE/ HYDROCHLOROTHIAZIDE 5 MG/50 MG)
     Route: 048
  4. CHLORHYDRATE D^ACEBUTOLOL [Suspect]
     Dosage: 1 DOSAGE FORMS DAILY;
     Route: 048
  5. CHONDROSULF 400 MG [Concomitant]
     Dosage: 800 MILLIGRAM DAILY; LONG-TERM TREATMENT
     Route: 048
  6. DIFFU K [Concomitant]
     Dosage: 600 MILLIGRAM DAILY; LONG-TERM TREATMENT
     Route: 048
  7. METFORMINE BIOGARAN 500 MG [Concomitant]
     Indication: DIABETES MELLITUS
     Dosage: 1500 MILLIGRAM DAILY; LONG-TERM TREATMENT
     Route: 048
  8. LETROZOLE BIOGARAN 2.5 MG [Concomitant]
     Dosage: 2.5 MILLIGRAM DAILY; LONG-TERM TREATMENT
     Route: 048
  9. OMEPRAZOLE TEVA 20 MG [Concomitant]
     Dosage: 20 MILLIGRAM DAILY; LONG-TERM TREATMENT
     Route: 048

REACTIONS (4)
  - Loss of consciousness [Recovered/Resolved]
  - Malaise [Recovered/Resolved]
  - Road traffic accident [Recovered/Resolved]
  - Haematoma [Unknown]
